FAERS Safety Report 7658844-9 (Version None)
Quarter: 2011Q3

REPORT INFORMATION
  Report Type: 
  Country: None (occurrence: None)
  Receive Date: 20110805
  Receipt Date: 20110803
  Transmission Date: 20111222
  Serious: Yes (Hospitalization, Other)
  Sender: FDA-Public Use
  Company Number: US-PFIZER INC-2011177542

PATIENT
  Sex: Male

DRUGS (4)
  1. XANAX [Suspect]
     Dosage: UNK (0.25 MG 1\2 TAB PO TID + 1\1 HS PRN)
     Route: 048
  2. EFFEXOR XR [Concomitant]
     Dosage: 75 MG, UNK
  3. ZYPREXA [Concomitant]
     Dosage: 2.5 MG, UNK
  4. ZOLOFT [Suspect]
     Dosage: 100 MG, 1X/DAY (1/1 PO QHS)
     Route: 048

REACTIONS (4)
  - ANXIETY [None]
  - DEPRESSION [None]
  - MENTAL DISORDER [None]
  - SUICIDAL IDEATION [None]
